FAERS Safety Report 25689908 (Version 1)
Quarter: 2025Q3

REPORT INFORMATION
  Report Type: Spontaneous
  Country: CH (occurrence: CH)
  Receive Date: 20250818
  Receipt Date: 20250818
  Transmission Date: 20251020
  Serious: Yes (Other)
  Sender: ANI
  Company Number: CH-ANIPHARMA-2025-CH-000015

PATIENT
  Sex: Female

DRUGS (4)
  1. ARIMIDEX [Suspect]
     Active Substance: ANASTROZOLE
     Indication: Product used for unknown indication
     Dates: start: 20230215
  2. ACLASTA [Concomitant]
     Active Substance: ZOLEDRONIC ACID
  3. CALCIUM CARBONATE [Concomitant]
     Active Substance: CALCIUM CARBONATE
  4. ANASTROZOLE [Suspect]
     Active Substance: ANASTROZOLE
     Dates: end: 202506

REACTIONS (3)
  - Eczema [Recovering/Resolving]
  - Skin exfoliation [Unknown]
  - Condition aggravated [Unknown]

NARRATIVE: CASE EVENT DATE: 20230815
